FAERS Safety Report 6786315-0 (Version None)
Quarter: 2010Q2

REPORT INFORMATION
  Report Type: 
  Country: None (occurrence: None)
  Receive Date: 20100623
  Receipt Date: 20100615
  Transmission Date: 20101027
  Serious: Yes (Other)
  Sender: FDA-Public Use
  Company Number: GXKR2010IT06599

PATIENT
  Age: 60 Year
  Sex: Female

DRUGS (1)
  1. DICLOFENAC (NGX) [Suspect]
     Route: 030

REACTIONS (7)
  - CORYNEBACTERIUM TEST POSITIVE [None]
  - DEBRIDEMENT [None]
  - EMBOLIA CUTIS MEDICAMENTOSA [None]
  - NECROSIS [None]
  - PROTEUS TEST POSITIVE [None]
  - SUTURE INSERTION [None]
  - WOUND DRAINAGE [None]
